FAERS Safety Report 5023972-3 (Version None)
Quarter: 2006Q2

REPORT INFORMATION
  Report Type: 
  Country: None (occurrence: None)
  Receive Date: 20060612
  Receipt Date: 20060602
  Transmission Date: 20061013
  Serious: Yes (Hospitalization)
  Sender: FDA-Public Use
  Company Number: BE-ABBOTT-06P-013-0335172-00

PATIENT
  Sex: Male

DRUGS (7)
  1. HUMIRA [Suspect]
     Indication: RHEUMATOID ARTHRITIS
     Route: 058
     Dates: start: 20041011, end: 20060227
  2. HUMIRA [Suspect]
     Route: 058
     Dates: start: 20060327
  3. METHOTREXATE [Concomitant]
     Indication: DRUG USE FOR UNKNOWN INDICATION
  4. METHYLPREDNISOLONE [Concomitant]
     Indication: DRUG USE FOR UNKNOWN INDICATION
     Dosage: 4-2-4 MG/DAY
  5. FOLIC ACID [Concomitant]
     Indication: DRUG USE FOR UNKNOWN INDICATION
  6. AMOXICLAV [Concomitant]
     Indication: BRONCHITIS
     Dates: start: 20060222
  7. ACETYLCYSTEINE [Concomitant]
     Indication: BRONCHITIS

REACTIONS (7)
  - APHTHOUS STOMATITIS [None]
  - BACK PAIN [None]
  - BRONCHITIS [None]
  - CONJUNCTIVITIS [None]
  - ECZEMA [None]
  - FATIGUE [None]
  - MALAISE [None]
